FAERS Safety Report 9183571 (Version 2)
Quarter: 2012Q4

REPORT INFORMATION
  Report Type: 
  Country: US (occurrence: US)
  Receive Date: 20121030
  Receipt Date: 20121105
  Transmission Date: 20130627
  Serious: Yes (Other)
  Sender: FDA-Public Use
  Company Number: US-RB-045973-12

PATIENT
  Sex: Female

DRUGS (4)
  1. MUCINEX DM (GUAIFENESIN) [Suspect]
     Indication: SINUS DISORDER
     Dosage: Patient took product twice a day every day
     Route: 048
  2. MUCINEX DM (DEXTROMETHORPHAN HYDROBROMIDE) [Suspect]
  3. ALLEGRA [Concomitant]
     Indication: MULTIPLE ALLERGIES
  4. FLORASTOR [Concomitant]
     Indication: PROBIOTIC THERAPY

REACTIONS (4)
  - Oesophageal ulcer [Not Recovered/Not Resolved]
  - Incorrect drug administration duration [Not Recovered/Not Resolved]
  - Duodenal ulcer [Not Recovered/Not Resolved]
  - Off label use [Not Recovered/Not Resolved]
